FAERS Safety Report 24583308 (Version 1)
Quarter: 2024Q4

REPORT INFORMATION
  Report Type: Spontaneous
  Country: FR (occurrence: FR)
  Receive Date: 20241106
  Receipt Date: 20241106
  Transmission Date: 20250114
  Serious: Yes (Life-Threatening, Other)
  Sender: CIPLA
  Company Number: FR-AFSSAPS-AM2024000855

PATIENT

DRUGS (7)
  1. ESOMEPRAZOLE [Suspect]
     Active Substance: ESOMEPRAZOLE
     Indication: Poisoning deliberate
     Dosage: 160 MILLIGRAM (1 TOTAL)
     Route: 048
     Dates: start: 20230906, end: 20230906
  2. NICARDIPINE HYDROCHLORIDE [Suspect]
     Active Substance: NICARDIPINE HYDROCHLORIDE
     Indication: Poisoning deliberate
     Dosage: 12 DOSAGE FORM (1 TOTAL)
     Route: 048
     Dates: start: 20230906, end: 20230906
  3. RILMENIDINE [Suspect]
     Active Substance: RILMENIDINE
     Indication: Poisoning deliberate
     Dosage: 8 MILLIGRAM (1 TOTAL)
     Route: 048
     Dates: start: 20230906, end: 20230906
  4. PERINDOPRIL [Suspect]
     Active Substance: PERINDOPRIL
     Indication: Poisoning deliberate
     Dosage: 32 MILLIGRAM (1 TOTAL)
     Route: 048
     Dates: start: 20230906, end: 20230906
  5. ATORVASTATIN [Suspect]
     Active Substance: ATORVASTATIN
     Indication: Poisoning deliberate
     Dosage: 160 MILLIGRAM (1 TOTAL)
     Route: 048
     Dates: start: 20230906, end: 20230906
  6. ASPIRIN [Suspect]
     Active Substance: ASPIRIN
     Indication: Poisoning deliberate
     Dosage: 800 MILLIGRAM (1 TOTAL)
     Route: 048
     Dates: start: 20230906, end: 20230906
  7. LEVETIRACETAM [Suspect]
     Active Substance: LEVETIRACETAM
     Indication: Poisoning deliberate
     Dosage: 10 GRAM (1 TOTAL)
     Route: 048
     Dates: start: 20230906, end: 20230906

REACTIONS (2)
  - Circulatory collapse [Recovered/Resolved]
  - Intentional overdose [Recovered/Resolved]

NARRATIVE: CASE EVENT DATE: 20230906
